FAERS Safety Report 7540769-0 (Version None)
Quarter: 2011Q2

REPORT INFORMATION
  Report Type: 
  Country: None (occurrence: None)
  Receive Date: 20110610
  Receipt Date: 20110531
  Transmission Date: 20111010
  Serious: Yes (Death)
  Sender: FDA-Public Use
  Company Number: US-ROCHE-779635

PATIENT
  Age: 46 Year
  Sex: Female

DRUGS (2)
  1. AVASTIN [Suspect]
     Indication: BREAST CANCER
     Dosage: 18 MONTHS THERAPY
     Route: 065
  2. AVASTIN [Suspect]
     Indication: BREAST CANCER METASTATIC
     Dosage: 6 MONTHS THERAPY
     Route: 065

REACTIONS (1)
  - PULMONARY HYPERTENSION [None]
